FAERS Safety Report 14847225 (Version 1)
Quarter: 2018Q2

REPORT INFORMATION
  Report Type: Spontaneous
  Country: CH (occurrence: CH)
  Receive Date: 20180504
  Receipt Date: 20180504
  Transmission Date: 20180711
  Serious: Yes (Other)
  Sender: FDA-Public Use
  Company Number: PHHY2018CH073383

PATIENT
  Sex: Female

DRUGS (2)
  1. SALAZOPYRINE [Concomitant]
     Active Substance: SULFASALAZINE
     Indication: SERONEGATIVE ARTHRITIS
     Dosage: 2 G, QD
     Route: 065
  2. COSENTYX [Suspect]
     Active Substance: SECUKINUMAB
     Indication: SPONDYLOARTHROPATHY
     Dosage: 300 MG, QMO
     Route: 065

REACTIONS (2)
  - Tooth discolouration [Unknown]
  - Dental necrosis [Unknown]
